FAERS Safety Report 25436091 (Version 1)
Quarter: 2025Q2

REPORT INFORMATION
  Report Type: Spontaneous
  Country: US (occurrence: US)
  Receive Date: 20250614
  Receipt Date: 20250614
  Transmission Date: 20250717
  Serious: Yes (Death, Other)
  Sender: AMGEN
  Company Number: US-AMGEN-USASP2025112113

PATIENT

DRUGS (2)
  1. PREDNISONE [Suspect]
     Active Substance: PREDNISONE
     Indication: Amyloidosis
     Route: 065
  2. MELPHALAN [Concomitant]
     Active Substance: MELPHALAN
     Indication: Amyloidosis

REACTIONS (9)
  - Amyloidosis [Fatal]
  - Infection [Fatal]
  - Cardiac arrest [Fatal]
  - Acute myocardial infarction [Fatal]
  - Ill-defined disorder [Fatal]
  - Failure to thrive [Fatal]
  - Myelosuppression [Unknown]
  - Off label use [Unknown]
  - Therapy partial responder [Unknown]
